FAERS Safety Report 21817347 (Version 1)
Quarter: 2023Q1

REPORT INFORMATION
  Report Type: Spontaneous
  Country: US (occurrence: None)
  Receive Date: 20230104
  Receipt Date: 20230104
  Transmission Date: 20230418
  Serious: Yes (Hospitalization)
  Sender: FDA-Public Use
  Company Number: None

PATIENT
  Sex: Male

DRUGS (2)
  1. OPSUMIT [Suspect]
     Active Substance: MACITENTAN
     Indication: Pulmonary arterial hypertension
     Dosage: 10MG ONCE A DAY BY MOUTH?
     Route: 048
     Dates: start: 20220104
  2. UPTRAVI [Suspect]
     Active Substance: SELEXIPAG

REACTIONS (2)
  - Cardiac output decreased [None]
  - Therapy cessation [None]
